FAERS Safety Report 7115136-4 (Version None)
Quarter: 2010Q4

REPORT INFORMATION
  Report Type: 
  Country: None (occurrence: None)
  Receive Date: 20101116
  Receipt Date: 20101116
  Transmission Date: 20110411
  Serious: Yes (Hospitalization, Other)
  Sender: FDA-Public Use
  Company Number: None

PATIENT
  Sex: Female
  Weight: 45 kg

DRUGS (1)
  1. OXCARBAZEPINE (TRILEPTAL) 300 MG UNKNOWN - GENERIC [Suspect]
     Indication: GRAND MAL CONVULSION
     Dosage: 600 MG BID ORAL
     Route: 048
     Dates: start: 20100815, end: 20100903

REACTIONS (2)
  - DRUG INEFFECTIVE [None]
  - STEVENS-JOHNSON SYNDROME [None]
